FAERS Safety Report 5771713-4 (Version None)
Quarter: 2008Q2

REPORT INFORMATION
  Report Type: 
  Country: None (occurrence: None)
  Receive Date: 20080613
  Receipt Date: 20080603
  Transmission Date: 20081010
  Serious: Yes (Other)
  Sender: FDA-Public Use
  Company Number: JP-SANOFI-SYNTHELABO-A01200805645

PATIENT
  Sex: Male
  Weight: 60 kg

DRUGS (8)
  1. PLAVIX [Suspect]
     Indication: ANGINA PECTORIS
     Route: 048
     Dates: start: 20080408, end: 20080516
  2. PLAVIX [Suspect]
     Indication: PERCUTANEOUS CORONARY INTERVENTION
     Route: 048
     Dates: start: 20080408, end: 20080516
  3. RABEPRAZOLE SODIUM [Concomitant]
     Indication: REFLUX OESOPHAGITIS
     Route: 048
     Dates: start: 20080502
  4. NU-LOTAN [Concomitant]
     Indication: HYPERTENSION
     Route: 048
     Dates: start: 20080502, end: 20080516
  5. PAMILCON [Concomitant]
     Indication: DIABETES MELLITUS
     Dosage: 2.5 MG + 1.25 MG DAILY
     Route: 048
     Dates: start: 20070203
  6. GLYCORAN [Concomitant]
     Indication: DIABETES MELLITUS
     Route: 048
     Dates: start: 19990816
  7. ASPIRIN [Concomitant]
     Indication: ANGINA PECTORIS
     Route: 048
     Dates: start: 20040529, end: 20080516
  8. ASPIRIN [Concomitant]
     Route: 048
     Dates: start: 20080517

REACTIONS (4)
  - ANAEMIA [None]
  - BONE MARROW FAILURE [None]
  - RED BLOOD CELL COUNT DECREASED [None]
  - WHITE BLOOD CELL COUNT DECREASED [None]
